FAERS Safety Report 8246241-7 (Version None)
Quarter: 2012Q1

REPORT INFORMATION
  Report Type: 
  Country: None (occurrence: None)
  Receive Date: 20120330
  Receipt Date: 20120323
  Transmission Date: 20120608
  Serious: Yes (Disabling)
  Sender: FDA-Public Use
  Company Number: US-BAYER-2011-109415

PATIENT
  Age: 20 Year
  Sex: Female

DRUGS (4)
  1. ZYRTEC-D 12 HOUR [Concomitant]
     Indication: MULTIPLE ALLERGIES
     Dosage: UNK
     Route: 048
     Dates: start: 20041227, end: 20070101
  2. YASMIN [Suspect]
     Dosage: UNK
     Route: 048
     Dates: start: 20040918, end: 20060901
  3. LEXAPRO [Concomitant]
     Indication: DEPRESSION
  4. LEXAPRO [Concomitant]
     Indication: ANXIETY
     Dosage: 10 MG, UNK
     Route: 048
     Dates: start: 20050817, end: 20081230

REACTIONS (2)
  - INJURY [None]
  - CEREBROVASCULAR ACCIDENT [None]
